FAERS Safety Report 22162840 (Version 5)
Quarter: 2023Q2

REPORT INFORMATION
  Report Type: Report from Study
  Country: US (occurrence: US)
  Receive Date: 20230331
  Receipt Date: 20230621
  Transmission Date: 20230722
  Serious: Yes (Congenital Anomaly, Other)
  Sender: FDA-Public Use
  Company Number: US-GILEAD-2023-0622309

PATIENT
  Sex: Female
  Weight: 3.39 kg

DRUGS (4)
  1. EMTRICITABINE\TENOFOVIR [Suspect]
     Active Substance: EMTRICITABINE\TENOFOVIR
     Indication: HIV infection
     Dosage: 1 DOSAGE FORM TRANSPLACENTAL
     Route: 065
     Dates: start: 20210511, end: 20210621
  2. EMTRICITABINE\TENOFOVIR [Suspect]
     Active Substance: EMTRICITABINE\TENOFOVIR
     Dosage: 1 DOSAGE FORM  TRANSPLACENTAL
     Route: 065
     Dates: start: 20210913, end: 20220208
  3. DOLUTEGRAVIR [Suspect]
     Active Substance: DOLUTEGRAVIR
     Indication: HIV infection
     Dosage: 1 DOSAGE FORM  TRANSPLACENTAL
     Route: 065
     Dates: start: 20210511, end: 20210601
  4. DOLUTEGRAVIR [Suspect]
     Active Substance: DOLUTEGRAVIR
     Dosage: 1 DOSAGE FORM  TRANSPLACENTAL
     Route: 065
     Dates: start: 20210913, end: 20220208

REACTIONS (13)
  - Congenital great vessel anomaly [Unknown]
  - Patent ductus arteriosus [Unknown]
  - Pyelocaliectasis [Unknown]
  - Ventricular septal defect [Recovered/Resolved]
  - Anomalous pulmonary venous connection [Unknown]
  - Heterotaxia [Not Recovered/Not Resolved]
  - Atrial septal defect [Recovered/Resolved]
  - Lung disorder [Unknown]
  - Accessory auricle [Unknown]
  - Accessory auricle [Unknown]
  - Right ventricular hypertrophy [Unknown]
  - Sinus arrhythmia [Unknown]
  - Foetal exposure during pregnancy [Recovered/Resolved]

NARRATIVE: CASE EVENT DATE: 20210511
